FAERS Safety Report 15258392 (Version 3)
Quarter: 2018Q4

REPORT INFORMATION
  Report Type: Report from Study
  Country: None (occurrence: FR)
  Receive Date: 20180809
  Receipt Date: 20181108
  Transmission Date: 20190204
  Serious: Yes (Hospitalization, Other)
  Sender: FDA-Public Use
  Company Number: FR-ABBVIE-18S-056-2444911-00

PATIENT
  Age: 68 Year
  Sex: Female

DRUGS (3)
  1. DUODOPA [Suspect]
     Active Substance: CARBIDOPA\LEVODOPA
     Indication: MULTIPLE SYSTEM ATROPHY
     Route: 050
     Dates: start: 201805
  2. DUODOPA [Suspect]
     Active Substance: CARBIDOPA\LEVODOPA
     Indication: DOPA-RESPONSIVE DYSTONIA
     Route: 050
     Dates: start: 201808
  3. ANTIBIOTIC [Concomitant]
     Active Substance: UNSPECIFIED INGREDIENT
     Indication: URINARY TRACT INFECTION

REACTIONS (3)
  - Urinary tract infection [Not Recovered/Not Resolved]
  - General physical health deterioration [Not Recovered/Not Resolved]
  - Off label use [Unknown]

NARRATIVE: CASE EVENT DATE: 201805
